FAERS Safety Report 9273566 (Version 2)
Quarter: 2013Q2

REPORT INFORMATION
  Report Type: Spontaneous
  Country: US (occurrence: US)
  Receive Date: 20130506
  Receipt Date: 20130604
  Transmission Date: 20140414
  Serious: Yes (Other)
  Sender: FDA-Public Use
  Company Number: US-AMGEN-USASP2013029121

PATIENT
  Age: 28 Year
  Sex: Male
  Weight: 72.56 kg

DRUGS (2)
  1. ENBREL [Suspect]
     Indication: PSORIASIS
     Dosage: 50 MG, QWK
     Dates: start: 201205, end: 20130423
  2. HUMIRA [Concomitant]
     Dosage: UNK

REACTIONS (2)
  - Chlamydial infection [Recovered/Resolved]
  - Drug ineffective [Unknown]
